FAERS Safety Report 15024465 (Version 3)
Quarter: 2018Q4

REPORT INFORMATION
  Report Type: Spontaneous
  Country: TW (occurrence: TW)
  Receive Date: 20180618
  Receipt Date: 20181001
  Transmission Date: 20190204
  Serious: Yes (Hospitalization, Other)
  Sender: FDA-Public Use
  Company Number: TW-PFIZER INC-2018241998

PATIENT
  Age: 4 Decade
  Sex: Male

DRUGS (1)
  1. NORVASC [Suspect]
     Active Substance: AMLODIPINE BESYLATE
     Indication: MOOD ALTERED
     Dosage: UNK (TWO BOXES AT A TIME)
     Dates: start: 20180612

REACTIONS (6)
  - Product use in unapproved indication [Unknown]
  - Renal impairment [Unknown]
  - Heart rate increased [Unknown]
  - Cardiac discomfort [Unknown]
  - Intentional overdose [Unknown]
  - Hepatic function abnormal [Unknown]

NARRATIVE: CASE EVENT DATE: 20180612
